FAERS Safety Report 11411058 (Version 1)
Quarter: 2015Q3

REPORT INFORMATION
  Report Type: Spontaneous
  Country: US (occurrence: US)
  Receive Date: 20150821
  Receipt Date: 20150821
  Transmission Date: 20151125
  Serious: Yes (Other)
  Sender: FDA-Public Use
  Company Number: US-ELI_LILLY_AND_COMPANY-US201003002453

PATIENT
  Sex: Female

DRUGS (2)
  1. HUMULIN N [Suspect]
     Active Substance: INSULIN HUMAN
     Indication: TYPE 2 DIABETES MELLITUS
     Dosage: 16 U, 2/D
     Dates: start: 201002
  2. NOVOLIN [Suspect]
     Active Substance: INSULIN HUMAN
     Dates: end: 201002

REACTIONS (3)
  - Hypoglycaemic unconsciousness [Recovered/Resolved]
  - Movement disorder [Recovered/Resolved]
  - Blood glucose decreased [Recovered/Resolved]

NARRATIVE: CASE EVENT DATE: 20100307
